FAERS Safety Report 21603472 (Version 5)
Quarter: 2023Q2

REPORT INFORMATION
  Report Type: Report from Study
  Country: US (occurrence: US)
  Receive Date: 20221116
  Receipt Date: 20230417
  Transmission Date: 20230722
  Serious: No
  Sender: FDA-Public Use
  Company Number: US-002147023-NVSC2022US254746

PATIENT
  Age: 93 Year
  Sex: Female

DRUGS (3)
  1. XIIDRA [Suspect]
     Active Substance: LIFITEGRAST
     Indication: Dry eye
     Dosage: UNK
     Route: 047
     Dates: start: 20221101
  2. XIIDRA [Suspect]
     Active Substance: LIFITEGRAST
     Dosage: UNK, BID (1 DROP)
     Route: 047
     Dates: start: 20221102
  3. XIIDRA [Suspect]
     Active Substance: LIFITEGRAST
     Dosage: UNK (USED FOR ABOUT 1 WEEK)
     Route: 047
     Dates: start: 20221102

REACTIONS (6)
  - Balance disorder [Unknown]
  - Myokymia [Unknown]
  - Anxiety disorder [Unknown]
  - Eye irritation [Recovered/Resolved]
  - Vision blurred [Unknown]
  - Drug ineffective [Unknown]

NARRATIVE: CASE EVENT DATE: 20221110
